FAERS Safety Report 6616981-1 (Version None)
Quarter: 2010Q1

REPORT INFORMATION
  Report Type: 
  Country: None (occurrence: None)
  Receive Date: 20100302
  Receipt Date: 20100222
  Transmission Date: 20100710
  Serious: Yes (Death, Other)
  Sender: FDA-Public Use
  Company Number: 2010JP001096

PATIENT
  Age: 70 Year
  Sex: Male

DRUGS (7)
  1. PROGRAF [Suspect]
     Indication: CORD BLOOD TRANSPLANT THERAPY
  2. FLUDARABINE PHOSPHATE [Concomitant]
  3. MELPHALAN HYDROCHLORIDE [Concomitant]
  4. METHOTREXATE [Concomitant]
  5. GANCICLOVIR [Concomitant]
  6. PREDNISOLONE [Concomitant]
  7. PENTAMIDINE (PENTAMIDINE) [Concomitant]

REACTIONS (3)
  - CYTOMEGALOVIRUS INFECTION [None]
  - ORGANISING PNEUMONIA [None]
  - RESPIRATORY FAILURE [None]
